FAERS Safety Report 5170181-3 (Version None)
Quarter: 2006Q4

REPORT INFORMATION
  Report Type: 
  Country: None (occurrence: None)
  Receive Date: 20061212
  Receipt Date: 20060620
  Transmission Date: 20070319
  Serious: Yes (Other)
  Sender: FDA-Public Use
  Company Number: DE-ELI_LILLY_AND_COMPANY-DE200606004477

PATIENT
  Age: 11 Year
  Sex: Male
  Weight: 526 kg

DRUGS (2)
  1. STRATTERA [Suspect]
     Indication: ATTENTION DEFICIT/HYPERACTIVITY DISORDER
     Dosage: 60 MG, DAILY (1/D)
     Route: 048
     Dates: end: 20060609
  2. STRATTERA [Suspect]
     Dosage: UNK, DAILY (1/D)
     Route: 048
     Dates: start: 20050601

REACTIONS (9)
  - BRADYCARDIA [None]
  - DISTURBANCE IN ATTENTION [None]
  - FATIGUE [None]
  - FRUSTRATION [None]
  - RESTLESSNESS [None]
  - SPEECH DISORDER [None]
  - SUPRAVENTRICULAR EXTRASYSTOLES [None]
  - VENTRICULAR EXTRASYSTOLES [None]
  - VENTRICULAR TACHYCARDIA [None]
